FAERS Safety Report 5663662-7 (Version None)
Quarter: 2008Q1

REPORT INFORMATION
  Report Type: 
  Country: None (occurrence: None)
  Receive Date: 20080307
  Receipt Date: 20080222
  Transmission Date: 20080703
  Serious: Yes (Life-Threatening, Hospitalization)
  Sender: FDA-Public Use
  Company Number: 080225-0000177

PATIENT
  Age: 62 Year
  Sex: Male

DRUGS (46)
  1. CLORAZEPATE DIPOTASSIUM [Suspect]
     Indication: SEDATION
     Dosage: 5MG, TID; PO, 10 MG, HS, PO
     Route: 048
     Dates: start: 20050627, end: 20050702
  2. CLORAZEPATE DIPOTASSIUM [Suspect]
     Indication: SEDATION
     Dosage: 5MG, TID; PO, 10 MG, HS, PO
     Route: 048
     Dates: start: 20050705, end: 20050705
  3. ISOPTIN [Suspect]
     Indication: ATRIAL FIBRILLATION
     Dosage: QD; PO
     Route: 048
     Dates: start: 20050709
  4. PANTOPRAZOLE SODIUM [Suspect]
     Indication: PROPHYLAXIS
     Dosage: 40 MG;QD;PO, 40 MG,QD;PO
     Route: 048
     Dates: start: 20050629, end: 20050630
  5. PANTOPRAZOLE SODIUM [Suspect]
     Indication: PROPHYLAXIS
     Dosage: 40 MG;QD;PO, 40 MG,QD;PO
     Route: 048
     Dates: start: 20050703, end: 20050718
  6. THEOPHYLLINE [Suspect]
     Indication: CHRONIC OBSTRUCTIVE PULMONARY DISEASE
     Dosage: 200 MG, IV, 200 MG, IV, 200 MG, IV
     Route: 042
     Dates: start: 20050627, end: 20050630
  7. THEOPHYLLINE [Suspect]
     Indication: CHRONIC OBSTRUCTIVE PULMONARY DISEASE
     Dosage: 200 MG, IV, 200 MG, IV, 200 MG, IV
     Route: 042
     Dates: start: 20050718, end: 20050718
  8. THEOPHYLLINE [Suspect]
     Indication: CHRONIC OBSTRUCTIVE PULMONARY DISEASE
     Dosage: 200 MG, IV, 200 MG, IV, 200 MG, IV
     Route: 042
     Dates: start: 20050721, end: 20050721
  9. THEOPHYLLINE [Suspect]
     Indication: CHRONIC OBSTRUCTIVE PULMONARY DISEASE
     Dosage: 600 MG,QD;PO
     Route: 048
     Dates: start: 20050703, end: 20050709
  10. AMBROXOL [Suspect]
     Indication: EVIDENCE BASED TREATMENT
     Dosage: 28 DF,BID;PO
     Route: 048
     Dates: start: 20050701, end: 20050718
  11. KALINOR-BRAUSETABLETTEN (KALINOR-BRAUSETABLETTEN) [Suspect]
     Indication: HYPOKALAEMIA
     Dosage: 1 DF, QD; PO
     Route: 048
     Dates: start: 20050704, end: 20050714
  12. HEPARIN SODIUM [Suspect]
     Indication: THROMBOSIS PROPHYLAXIS
     Dosage: 25000 IU;QD;SC
     Route: 058
     Dates: start: 20050627, end: 20050709
  13. FENOTEROL HYDROBROMIDE [Suspect]
     Indication: CHRONIC OBSTRUCTIVE PULMONARY DISEASE
     Dosage: INH
     Route: 055
     Dates: start: 20040601
  14. TIOTROPIUM BROMIDE [Suspect]
     Indication: CHRONIC OBSTRUCTIVE PULMONARY DISEASE
     Dosage: QD
     Dates: start: 20040601
  15. ACETYLCYSTEINE [Suspect]
     Indication: EVIDENCE BASED TREATMENT
     Dosage: 600 MG QD;PO
     Route: 048
     Dates: start: 20050629, end: 20050712
  16. FORMOTEROL [Suspect]
     Indication: CHRONIC OBSTRUCTIVE PULMONARY DISEASE
     Dosage: BID;INH
     Route: 055
     Dates: start: 20050629, end: 20050718
  17. PREDNISOLONE [Suspect]
     Indication: CHRONIC OBSTRUCTIVE PULMONARY DISEASE
     Dosage: 50 MG;QD;PO, 80 MG;QD;PO, 15 MG,QD;PO, 5 MG,PO, 20 MG,QD;PO, 100 MG,QD;PO
     Route: 048
     Dates: start: 20050628, end: 20050705
  18. PREDNISOLONE [Suspect]
     Indication: CHRONIC OBSTRUCTIVE PULMONARY DISEASE
     Dosage: 50 MG;QD;PO, 80 MG;QD;PO, 15 MG,QD;PO, 5 MG,PO, 20 MG,QD;PO, 100 MG,QD;PO
     Route: 048
     Dates: start: 20050707, end: 20050715
  19. PREDNISOLONE [Suspect]
     Indication: CHRONIC OBSTRUCTIVE PULMONARY DISEASE
     Dosage: 50 MG;QD;PO, 80 MG;QD;PO, 15 MG,QD;PO, 5 MG,PO, 20 MG,QD;PO, 100 MG,QD;PO
     Route: 048
     Dates: start: 20050716, end: 20050718
  20. PREDNISOLONE [Suspect]
     Indication: CHRONIC OBSTRUCTIVE PULMONARY DISEASE
     Dosage: 50 MG;QD;PO, 80 MG;QD;PO, 15 MG,QD;PO, 5 MG,PO, 20 MG,QD;PO, 100 MG,QD;PO
     Route: 048
     Dates: start: 20050721, end: 20050721
  21. PREDNISOLONE [Suspect]
     Indication: CHRONIC OBSTRUCTIVE PULMONARY DISEASE
     Dosage: 50 MG;QD;PO, 80 MG;QD;PO, 15 MG,QD;PO, 5 MG,PO, 20 MG,QD;PO, 100 MG,QD;PO
     Route: 048
     Dates: start: 20050719
  22. SALUTEC [Suspect]
     Indication: CORONARY ARTERY DISEASE
     Dosage: QD;PO
     Route: 048
     Dates: start: 20050703
  23. AMLODIPINE [Suspect]
     Indication: CORONARY ARTERY DISEASE
     Dosage: 5 MG;QD;
     Dates: start: 20050704, end: 20050709
  24. FUROSEMIDE [Suspect]
     Indication: HYPERTENSION
     Dosage: 40 MG,QD;PO
     Route: 048
     Dates: start: 20050707
  25. OXAZEPAM [Suspect]
     Indication: SEDATION
     Dosage: PO
     Route: 048
     Dates: start: 20050708, end: 20050708
  26. DIGITOXIN TAB [Suspect]
     Indication: CORONARY ARTERY DISEASE
     Dosage: 0.1 MG,QD;PO
     Route: 048
     Dates: start: 20050708
  27. PHENPROCOUMON [Suspect]
     Indication: ATRIAL FIBRILLATION
     Dosage: PO
     Route: 048
     Dates: start: 20050710
  28. CA-MINERALIEN [Suspect]
     Indication: OSTEOPOROSIS
     Dosage: 500 MG;BID;
     Dates: start: 20050715, end: 20050718
  29. COLECALCIFEROL [Suspect]
     Indication: OSTEOPOROSIS
     Dosage: 1000 IU,QD;PO
     Route: 048
     Dates: start: 20050718, end: 20050718
  30. SERETIDE [Suspect]
     Indication: CHRONIC OBSTRUCTIVE PULMONARY DISEASE
     Dosage: BID;INH
     Route: 055
     Dates: start: 20050718
  31. VERAGAMMA [Suspect]
     Dosage: 80 MG,QD;PO, 80 MG,TID;PO
     Route: 048
     Dates: start: 20050718
  32. GASTRACID [Suspect]
     Indication: PROPHYLAXIS
     Dosage: 20 MG,HS;PO
     Route: 048
     Dates: start: 20050719
  33. OSTEOPLUS BT [Suspect]
     Indication: OSTEOPOROSIS
     Dosage: BID;PO
     Route: 048
     Dates: start: 20050719
  34. RAMIPRIL [Suspect]
     Indication: CORONARY ARTERY DISEASE
     Dosage: QD;PO
     Route: 048
     Dates: start: 20050630, end: 20050702
  35. RINGER'S [Suspect]
     Indication: VOLUME BLOOD INCREASED
     Dosage: 1000 ML,QD;IV
     Route: 042
     Dates: start: 20050627, end: 20050703
  36. CLONIDINE HYDROCHLORIDE [Suspect]
     Indication: ALCOHOL WITHDRAWAL SYNDROME
     Dosage: 1.5 MG,QD;IV, 1.5 MG,QD;IV
     Route: 042
     Dates: start: 20050703, end: 20050704
  37. CLONIDINE HYDROCHLORIDE [Suspect]
     Indication: ALCOHOL WITHDRAWAL SYNDROME
     Dosage: 1.5 MG,QD;IV, 1.5 MG,QD;IV
     Route: 042
     Dates: start: 20050628
  38. GLYCERYL TRINITRATE [Suspect]
     Indication: HYPERTENSION
     Dosage: 50 MG, IV
     Route: 042
     Dates: start: 20050702, end: 20050702
  39. ALT-INSULIN [Suspect]
     Indication: BLOOD GLUCOSE INCREASED
     Dosage: SC
     Route: 058
     Dates: start: 20050703, end: 20050703
  40. MOXIFLOXACIN HYDROCHLORIDE [Suspect]
     Indication: CHRONIC OBSTRUCTIVE PULMONARY DISEASE
     Dosage: 400 MG;QD;PO
     Route: 048
     Dates: start: 20050627, end: 20050703
  41. MOXIFLOXACIN HYDROCHLORIDE [Suspect]
     Indication: INFECTION
     Dosage: 400 MG;QD;PO
     Route: 048
     Dates: start: 20050627, end: 20050703
  42. CLOMETHIAZOLE [Suspect]
     Indication: ALCOHOL WITHDRAWAL SYNDROME
     Dosage: 2 DF,TID;PO
     Route: 048
     Dates: start: 20050630, end: 20050703
  43. HALDOPERIDOL TROPFEN [Suspect]
     Indication: SEDATION
     Dosage: QD;PO, QD; PO
     Route: 048
     Dates: start: 20050629, end: 20050630
  44. HALDOPERIDOL TROPFEN [Suspect]
     Indication: SEDATION
     Dosage: QD;PO, QD; PO
     Route: 048
     Dates: start: 20050703, end: 20050703
  45. TERBUTALINE SULFATE [Suspect]
     Indication: DYSPNOEA
     Dosage: BID;SC
     Route: 058
     Dates: start: 20050627, end: 20050709
  46. BECLOMETHASONE DIPROPIONATE [Suspect]
     Indication: CHRONIC OBSTRUCTIVE PULMONARY DISEASE
     Dosage: BID;INH
     Route: 055
     Dates: start: 20050627, end: 20050715

REACTIONS (2)
  - STEVENS-JOHNSON SYNDROME [None]
  - TOXIC EPIDERMAL NECROLYSIS [None]
